FAERS Safety Report 7535307-2 (Version None)
Quarter: 2011Q2

REPORT INFORMATION
  Report Type: 
  Country: None (occurrence: None)
  Receive Date: 20110609
  Receipt Date: 20071224
  Transmission Date: 20111010
  Serious: Yes (Hospitalization)
  Sender: FDA-Public Use
  Company Number: PHHY2007NZ00771

PATIENT
  Sex: Female

DRUGS (1)
  1. CLOZAPINE [Suspect]
     Indication: SCHIZOPHRENIA
     Route: 048
     Dates: start: 20060712, end: 20071203

REACTIONS (4)
  - WHITE BLOOD CELL COUNT DECREASED [None]
  - NONSPECIFIC REACTION [None]
  - VIRAL INFECTION [None]
  - NEUTROPHIL COUNT DECREASED [None]
